FAERS Safety Report 25362574 (Version 1)
Quarter: 2025Q2

REPORT INFORMATION
  Report Type: Other
  Country: KR (occurrence: KR)
  Receive Date: 20250527
  Receipt Date: 20250527
  Transmission Date: 20250717
  Serious: Yes (Life-Threatening, Hospitalization, Other)
  Sender: APTAPHARMA INC.
  Company Number: KR-AptaPharma Inc.-2177520

PATIENT
  Age: 46 Year
  Sex: Female
  Weight: 80 kg

DRUGS (4)
  1. FLUOXETINE HYDROCHLORIDE [Suspect]
     Active Substance: FLUOXETINE HYDROCHLORIDE
     Indication: Depression
  2. PHENTERMINE [Interacting]
     Active Substance: PHENTERMINE
  3. CHLORTHALIDONE [Interacting]
     Active Substance: CHLORTHALIDONE
  4. TOPIRAMATE [Interacting]
     Active Substance: TOPIRAMATE

REACTIONS (10)
  - Acute respiratory failure [Recovered/Resolved]
  - Drug interaction [Unknown]
  - Stress cardiomyopathy [Recovered/Resolved]
  - Renal failure [Recovered/Resolved]
  - Hypokalaemia [Recovered/Resolved]
  - Rhabdomyolysis [Recovered/Resolved]
  - Acute kidney injury [Recovered/Resolved]
  - Pulmonary embolism [Recovered/Resolved]
  - Serotonin syndrome [Recovered/Resolved]
  - Multiple organ dysfunction syndrome [Recovered/Resolved]
